FAERS Safety Report 23604983 (Version 3)
Quarter: 2024Q2

REPORT INFORMATION
  Report Type: Spontaneous
  Country: US (occurrence: US)
  Receive Date: 20240307
  Receipt Date: 20240412
  Transmission Date: 20240716
  Serious: No
  Sender: FDA-Public Use
  Company Number: US-009507513-2402USA009719

PATIENT
  Age: 65 Year
  Sex: Female

DRUGS (3)
  1. MOLNUPIRAVIR [Suspect]
     Active Substance: MOLNUPIRAVIR
     Dosage: 2 PILLS ONCE ON 2/25/2024
     Route: 048
     Dates: start: 20240225, end: 20240225
  2. MOLNUPIRAVIR [Suspect]
     Active Substance: MOLNUPIRAVIR
     Dosage: 4 PILLS ONCE ON 2/26/2024
     Route: 048
     Dates: start: 20240226, end: 20240226
  3. MOLNUPIRAVIR [Suspect]
     Active Substance: MOLNUPIRAVIR
     Dosage: 2 PILLS ONCE ON 2/27/2024
     Route: 048
     Dates: start: 20240227, end: 20240227

REACTIONS (8)
  - Product dose omission issue [Unknown]
  - Product primary packaging issue [Unknown]
  - Product physical issue [Unknown]
  - Product leakage [Unknown]
  - Incorrect dosage administered [Unknown]
  - Incorrect dosage administered [Unknown]
  - Incorrect dosage administered [Unknown]
  - No adverse event [Unknown]

NARRATIVE: CASE EVENT DATE: 20240225
